FAERS Safety Report 22006666 (Version 1)
Quarter: 2023Q1

REPORT INFORMATION
  Report Type: Spontaneous
  Country: FR (occurrence: FR)
  Receive Date: 20230217
  Receipt Date: 20230217
  Transmission Date: 20230417
  Serious: Yes (Life-Threatening)
  Sender: FDA-Public Use
  Company Number: None

PATIENT
  Age: 16 Year
  Sex: Female
  Weight: 85 kg

DRUGS (5)
  1. NITRAZEPAM [Suspect]
     Active Substance: NITRAZEPAM
     Indication: Product used for unknown indication
     Dosage: 10 MILLIGRAM, (2 X 5 MG TABLETS (SCORED TABLET), 1 TOTAL)
     Route: 048
     Dates: start: 20210529, end: 20210529
  2. QUETIAPINE [Suspect]
     Active Substance: QUETIAPINE
     Indication: Product used for unknown indication
     Dosage: 150 MILLIGRAM (3 X 50 MG TABLETS, 1 TOTAL)
     Route: 048
     Dates: start: 20210529, end: 20210529
  3. ALPRAZOLAM [Suspect]
     Active Substance: ALPRAZOLAM
     Indication: Product used for unknown indication
     Dosage: 0.25 MILLIGRAM (1 X 0.25 MG TABLET, 1 TOTAL)
     Route: 048
     Dates: start: 20210529, end: 20210529
  4. LOPRAZOLAM [Suspect]
     Active Substance: LOPRAZOLAM
     Indication: Product used for unknown indication
     Dosage: 1 MILLIGRAM, 1 TABLET OF 1 MG (SCORED TABLET), 1 TOTAL
     Route: 048
     Dates: start: 20210529, end: 20210529
  5. SERTRALINE [Suspect]
     Active Substance: SERTRALINE HYDROCHLORIDE
     Indication: Product used for unknown indication
     Dosage: 75 MILLIGRAM, (3 X 25 MG TABLETS, 1 TOTAL)
     Route: 048
     Dates: start: 20210529, end: 20210529

REACTIONS (3)
  - Somnolence [Recovered/Resolved]
  - Intentional overdose [Recovered/Resolved]
  - Vertigo [Recovered/Resolved]

NARRATIVE: CASE EVENT DATE: 20210529
